FAERS Safety Report 12762243 (Version 2)
Quarter: 2016Q3

REPORT INFORMATION
  Report Type: Spontaneous
  Country: JP (occurrence: JP)
  Receive Date: 20160920
  Receipt Date: 20160928
  Transmission Date: 20161109
  Serious: Yes (Hospitalization, Other)
  Sender: FDA-Public Use
  Company Number: JP-BAYER-2016-180191

PATIENT
  Age: 76 Year
  Sex: Female

DRUGS (5)
  1. ACETYLSALICYLIC ACID({=100 MG) [Suspect]
     Active Substance: ASPIRIN
     Indication: CEREBRAL ENDOVASCULAR ANEURYSM REPAIR
     Dosage: DAILY DOSE 100 MG
     Route: 048
  2. ACETYLSALICYLIC ACID({=100 MG) [Suspect]
     Active Substance: ASPIRIN
     Indication: CEREBRAL ENDOVASCULAR ANEURYSM REPAIR
     Dosage: DAILY DOSE 100 MG
     Route: 048
  3. CILOSTAZOL. [Concomitant]
     Active Substance: CILOSTAZOL
     Dosage: DAILY DOSE 200 MG
     Route: 048
  4. CLOPIDOGREL [Suspect]
     Active Substance: CLOPIDOGREL BISULFATE
     Indication: CEREBRAL ENDOVASCULAR ANEURYSM REPAIR
     Dosage: DAILY DOSE 75 MG
     Route: 048
  5. ACETYLSALICYLIC ACID({=100 MG) [Suspect]
     Active Substance: ASPIRIN
     Indication: CEREBRAL ENDOVASCULAR ANEURYSM REPAIR
     Dosage: DAILY DOSE 200 MG
     Route: 048

REACTIONS (6)
  - Aphasia [None]
  - Cerebral haemorrhage [None]
  - Labelled drug-drug interaction medication error [None]
  - VIth nerve paralysis [Recovering/Resolving]
  - Drug administration error [None]
  - Hemiplegia [None]
